FAERS Safety Report 18230166 (Version 1)
Quarter: 2020Q3

REPORT INFORMATION
  Report Type: Spontaneous
  Country: US (occurrence: US)
  Receive Date: 20200904
  Receipt Date: 20200904
  Transmission Date: 20201103
  Serious: No
  Sender: FDA-Public Use
  Company Number: US-DECIPHERA PHARMACEUTICALS LLC-2020-US-000020

PATIENT
  Age: 65 Year
  Sex: Male

DRUGS (1)
  1. QINLOCK [Suspect]
     Active Substance: RIPRETINIB
     Indication: GASTROINTESTINAL STROMAL TUMOUR
     Dosage: 150 MILLIGRAM, QD
     Route: 048
     Dates: start: 20200610

REACTIONS (9)
  - Hair colour changes [Unknown]
  - Myalgia [Not Recovered/Not Resolved]
  - Pain in extremity [Unknown]
  - Fatigue [Unknown]
  - Hair texture abnormal [Unknown]
  - Asthenia [Unknown]
  - Alopecia [Unknown]
  - Off label use [Recovered/Resolved]
  - Somnolence [Unknown]

NARRATIVE: CASE EVENT DATE: 20200619
